FAERS Safety Report 7760280-1 (Version None)
Quarter: 2011Q3

REPORT INFORMATION
  Report Type: 
  Country: None (occurrence: None)
  Receive Date: 20110919
  Receipt Date: 20110915
  Transmission Date: 20111222
  Serious: Yes (Death)
  Sender: FDA-Public Use
  Company Number: CO-PFIZER INC-2011184706

PATIENT
  Sex: Male

DRUGS (5)
  1. LIPITOR [Suspect]
     Dosage: 10 MG, 1X/DAY
     Route: 048
     Dates: start: 20071003
  2. METOPROLOL [Concomitant]
     Dosage: 50 MG, 2X/DAY
     Route: 048
  3. NORVASC [Suspect]
     Dosage: 10 MG, 1X/DAY
     Route: 048
     Dates: start: 20080103
  4. FUROSEMIDE [Concomitant]
     Dosage: 40 MG, 1X/DAY
     Route: 048
  5. ASPIRIN [Concomitant]
     Dosage: 100 MG, 1X/DAY
     Route: 048

REACTIONS (1)
  - DEATH [None]
